FAERS Safety Report 5007595-8 (Version None)
Quarter: 2006Q2

REPORT INFORMATION
  Report Type: 
  Country: None (occurrence: None)
  Receive Date: 20060518
  Receipt Date: 20060428
  Transmission Date: 20061013
  Serious: Yes (Other)
  Sender: FDA-Public Use
  Company Number: 2006038516

PATIENT
  Age: 48 Year
  Sex: Male
  Weight: 70 kg

DRUGS (8)
  1. NEURONTIN [Suspect]
     Indication: NEURALGIA
     Dosage: 900 MG (300 MG, 3 IN 1 D), ORAL
     Route: 048
     Dates: start: 20030101
  2. FLUPHENAZINE DECANOATE (FLUPHENAZINE DECANOATE) [Suspect]
     Indication: ILL-DEFINED DISORDER
     Dosage: 12.5 MG, 1 IN 1 M), INTRAMUSCULAR
     Route: 030
  3. STELAZINE [Suspect]
     Indication: ILL-DEFINED DISORDER
     Dosage: 4 MG (2 MG, 2 IN 1 D), ORAL
     Route: 048
  4. LEDERMYCIN (DEMECLOCYCLINE  HYDROCHLORIDE) [Suspect]
     Indication: INAPPROPRIATE ANTIDIURETIC HORMONE SECRETION
  5. HYTRIN [Concomitant]
  6. AMITRIPTYLINE HCL [Concomitant]
  7. CLONAZEPAM [Concomitant]
  8. DIXARIT (CLONIDINE HYDROCHLORIDE) [Concomitant]

REACTIONS (2)
  - INAPPROPRIATE ANTIDIURETIC HORMONE SECRETION [None]
  - PHOTOSENSITIVITY REACTION [None]
